FAERS Safety Report 25061677 (Version 4)
Quarter: 2025Q2

REPORT INFORMATION
  Report Type: Spontaneous
  Country: JP (occurrence: JP)
  Receive Date: 20250311
  Receipt Date: 20250417
  Transmission Date: 20250716
  Serious: Yes (Other)
  Sender: MERCK SHARP AND DOHME
  Company Number: JP-MSD-M2025-04657

PATIENT
  Age: 56 Year
  Sex: Male

DRUGS (4)
  1. PREVYMIS [Suspect]
     Active Substance: LETERMOVIR
     Dosage: DOSE DESCRIPTION : 240 MILLIGRAM, QD?DAILY DOSE : 240 MILLIGRAM
     Route: 048
     Dates: start: 20250122, end: 20250124
  2. PREVYMIS [Suspect]
     Active Substance: LETERMOVIR
     Dosage: DOSE DESCRIPTION : 120 MILLIGRAM, QD?DAILY DOSE : 120 MILLIGRAM
     Route: 048
     Dates: start: 20250125
  3. TACROLIMUS [Interacting]
     Active Substance: TACROLIMUS
     Route: 065
     Dates: start: 2025
  4. TACROLIMUS [Interacting]
     Active Substance: TACROLIMUS
     Route: 065
     Dates: start: 2025

REACTIONS (5)
  - Deep vein thrombosis [Unknown]
  - Drug level changed [Unknown]
  - Underdose [Unknown]
  - Drug interaction [Unknown]
  - Blood test abnormal [Recovered/Resolved]

NARRATIVE: CASE EVENT DATE: 20250101
